FAERS Safety Report 9392158 (Version 1)
Quarter: 2013Q3

REPORT INFORMATION
  Report Type: Spontaneous
  Country: FR (occurrence: FR)
  Receive Date: 20130710
  Receipt Date: 20130710
  Transmission Date: 20140515
  Serious: Yes (Hospitalization)
  Sender: FDA-Public Use
  Company Number: FR-009507513-1307FRA000880

PATIENT
  Age: 65 Year
  Sex: Female

DRUGS (9)
  1. FOSAVANCE [Suspect]
     Indication: OSTEOPOROSIS
     Dosage: UNK
     Route: 048
     Dates: start: 20110607, end: 20110621
  2. COUMADIN [Concomitant]
  3. CRESTOR [Concomitant]
  4. CETIRIZINE HYDROCHLORIDE [Concomitant]
  5. OGAST [Concomitant]
  6. EZETROL [Concomitant]
  7. MULTAQ [Concomitant]
  8. SYMBICORT [Concomitant]
  9. CALCIUM (UNSPECIFIED) (+) VITAMIN D (UNSPECIFIED) [Concomitant]

REACTIONS (1)
  - Purpura [Recovered/Resolved with Sequelae]
